FAERS Safety Report 23282346 (Version 2)
Quarter: 2023Q4

REPORT INFORMATION
  Report Type: Report from Study
  Country: JP (occurrence: JP)
  Receive Date: 20231211
  Receipt Date: 20231230
  Transmission Date: 20240109
  Serious: Yes (Hospitalization)
  Sender: FDA-Public Use
  Company Number: JP-AMGEN-JPNNI2023217270

PATIENT
  Age: 85 Year
  Sex: Male

DRUGS (7)
  1. SOTORASIB [Suspect]
     Active Substance: SOTORASIB
     Indication: K-ras gene mutation
     Dosage: 960 MILLIGRAM, QD
     Route: 048
     Dates: start: 20220905, end: 20221012
  2. SOTORASIB [Suspect]
     Active Substance: SOTORASIB
     Indication: Non-small cell lung cancer stage I
     Dosage: 480 MILLIGRAM, QD
     Route: 048
     Dates: start: 20221017, end: 20221019
  3. SOTORASIB [Suspect]
     Active Substance: SOTORASIB
     Dosage: 240 MILLIGRAM, QD
     Route: 048
     Dates: start: 20221020, end: 20221020
  4. MIRABEGRON [Concomitant]
     Active Substance: MIRABEGRON
     Dosage: UNK
  5. ROZEREM [Concomitant]
     Active Substance: RAMELTEON
     Dosage: UNK
  6. REBAMIPIDE [Concomitant]
     Active Substance: REBAMIPIDE
     Dosage: UNK
  7. ALLOID G [Concomitant]
     Active Substance: SODIUM ALGINATE
     Dosage: UNK
     Dates: start: 20220905

REACTIONS (2)
  - Hepatic function abnormal [Recovered/Resolved]
  - Diarrhoea [Recovered/Resolved]

NARRATIVE: CASE EVENT DATE: 20221003
